FAERS Safety Report 4351623-X (Version None)
Quarter: 2004Q2

REPORT INFORMATION
  Report Type: 
  Country: None (occurrence: None)
  Receive Date: 20040503
  Receipt Date: 20021113
  Transmission Date: 20050107
  Serious: Yes (Congenital Anomaly, Other)
  Sender: FDA-Public Use
  Company Number: 200221439US

PATIENT
  Sex: Male

DRUGS (3)
  1. LOVENOX [Suspect]
     Indication: FACTOR V DEFICIENCY
     Dates: start: 20010901, end: 20020401
  2. COUMADIN [Concomitant]
     Indication: FACTOR V DEFICIENCY
     Dosage: DOSE: UNK
  3. HEPARIN [Concomitant]
     Indication: FACTOR V DEFICIENCY
     Dosage: DOSE: UNK

REACTIONS (4)
  - COMPLICATIONS OF MATERNAL EXPOSURE TO THERAPEUTIC DRUGS [None]
  - CRANIOSYNOSTOSIS [None]
  - MATERNAL DRUGS AFFECTING FOETUS [None]
  - MEDICATION ERROR [None]
